FAERS Safety Report 23917982 (Version 1)
Quarter: 2024Q2

REPORT INFORMATION
  Report Type: Spontaneous
  Country: US (occurrence: US)
  Receive Date: 20240530
  Receipt Date: 20240530
  Transmission Date: 20240716
  Serious: No
  Sender: FDA-Public Use
  Company Number: US-STRIDES ARCOLAB LIMITED-2023SP018167

PATIENT
  Age: 58 Year
  Sex: Female

DRUGS (2)
  1. MINOCYCLINE [Suspect]
     Active Substance: MINOCYCLINE HYDROCHLORIDE
     Indication: Acne
     Dosage: 100 MILLIGRAM/DAY (FOR 25 YEARS)
     Route: 048
  2. MINOCYCLINE [Suspect]
     Active Substance: MINOCYCLINE HYDROCHLORIDE
     Indication: Hidradenitis

REACTIONS (4)
  - Pigmentation disorder [Unknown]
  - Scleral pigmentation [Unknown]
  - Nail pigmentation [Unknown]
  - Off label use [Unknown]
